FAERS Safety Report 9402334 (Version 1)
Quarter: 2013Q3

REPORT INFORMATION
  Report Type: Spontaneous
  Country: DE (occurrence: DE)
  Receive Date: 20130716
  Receipt Date: 20130716
  Transmission Date: 20140515
  Serious: Yes (Other)
  Sender: FDA-Public Use
  Company Number: DE-PFIZER INC-2013207068

PATIENT
  Age: 68 Year
  Sex: Male

DRUGS (1)
  1. SORTIS [Suspect]
     Indication: METABOLIC DISORDER
     Dosage: 10 MG, 1X/DAY

REACTIONS (1)
  - Hypothyroidism [Unknown]
